FAERS Safety Report 6261525-X (Version None)
Quarter: 2009Q3

REPORT INFORMATION
  Report Type: 
  Country: None (occurrence: None)
  Receive Date: 20090702
  Receipt Date: 20090330
  Transmission Date: 20100115
  Serious: No
  Sender: FDA-Public Use
  Company Number: 1000005542

PATIENT
  Sex: Male

DRUGS (1)
  1. BYSTOLIC [Suspect]
     Dosage: 5 MG (5 MG,1 IN 1 D)
     Dates: start: 20090301, end: 20090301

REACTIONS (2)
  - MALAISE [None]
  - NAUSEA [None]
